FAERS Safety Report 5455626-3 (Version None)
Quarter: 2007Q3

REPORT INFORMATION
  Report Type: 
  Country: None (occurrence: None)
  Receive Date: 20070918
  Receipt Date: 20070907
  Transmission Date: 20080115
  Serious: Yes (Hospitalization)
  Sender: FDA-Public Use
  Company Number: FR-JNJFOC-20070901138

PATIENT
  Age: 88 Year
  Sex: Female

DRUGS (6)
  1. OFLOCET [Suspect]
     Indication: PYELONEPHRITIS
     Route: 048
  2. AMLOR [Concomitant]
     Route: 065
  3. LODOZ [Concomitant]
     Route: 065
  4. RILMENIDINE [Concomitant]
     Route: 065
  5. FENOFIBRATE [Concomitant]
     Route: 065
  6. KARDEGIC [Concomitant]
     Route: 065

REACTIONS (3)
  - CONFUSIONAL STATE [None]
  - DISORIENTATION [None]
  - SOMNOLENCE [None]
